FAERS Safety Report 9630452 (Version 2)
Quarter: 2013Q4

REPORT INFORMATION
  Report Type: Spontaneous
  Country: US (occurrence: US)
  Receive Date: 20131018
  Receipt Date: 20131205
  Transmission Date: 20140711
  Serious: No
  Sender: FDA-Public Use
  Company Number: US-BIOGENIDEC-2013BI099567

PATIENT
  Age: 24 Year
  Sex: Male

DRUGS (1)
  1. TYSABRI [Suspect]
     Indication: CROHN^S DISEASE
     Route: 042
     Dates: start: 20130301, end: 20130830

REACTIONS (6)
  - Oral infection [Unknown]
  - Oedema mouth [Unknown]
  - Oral pain [Unknown]
  - Tooth extraction [Recovered/Resolved]
  - Wisdom teeth removal [Recovered/Resolved]
  - Swelling face [Recovered/Resolved]
